FAERS Safety Report 7022008-2 (Version None)
Quarter: 2010Q3

REPORT INFORMATION
  Report Type: 
  Country: None (occurrence: None)
  Receive Date: 20100930
  Receipt Date: 20091222
  Transmission Date: 20110219
  Serious: No
  Sender: FDA-Public Use
  Company Number: US-BAYER-200943953NA

PATIENT
  Age: 28 Year
  Sex: Female
  Weight: 64 kg

DRUGS (3)
  1. MIRENA [Suspect]
     Indication: CONTRACEPTION
     Route: 015
     Dates: start: 20091214
  2. ANTIBIOTIC [Concomitant]
     Indication: ACNE
  3. ANTIDEPRESSION [Concomitant]
     Indication: DEPRESSION

REACTIONS (1)
  - ABDOMINAL PAIN LOWER [None]
